FAERS Safety Report 9304398 (Version 1)
Quarter: 2013Q2

REPORT INFORMATION
  Report Type: Spontaneous
  Country: GB (occurrence: GB)
  Receive Date: 20130522
  Receipt Date: 20130522
  Transmission Date: 20140414
  Serious: Yes (Life-Threatening, Hospitalization)
  Sender: FDA-Public Use
  Company Number: PHHY2013GB050187

PATIENT
  Age: 69 Year
  Sex: Female

DRUGS (9)
  1. METFORMIN [Suspect]
     Indication: TYPE 2 DIABETES MELLITUS
     Dosage: 500 MG BID
     Route: 048
     Dates: start: 20031229, end: 20130403
  2. ESTRIOL [Concomitant]
  3. LISINOPRIL [Concomitant]
  4. CLOPIDOGREL [Concomitant]
  5. ALLOPURINOL [Concomitant]
  6. BENDROFLUMETHIAZIDE [Concomitant]
  7. DOXAZOSIN [Concomitant]
  8. ATORVASTATIN [Concomitant]
  9. PARACETAMOL [Concomitant]

REACTIONS (4)
  - Renal impairment [Unknown]
  - Change of bowel habit [Unknown]
  - Metabolic acidosis [Recovered/Resolved]
  - Diarrhoea [Unknown]
